FAERS Safety Report 15546233 (Version 3)
Quarter: 2018Q4

REPORT INFORMATION
  Report Type: Report from Study
  Country: AR (occurrence: AR)
  Receive Date: 20181024
  Receipt Date: 20181121
  Transmission Date: 20190205
  Serious: Yes (Hospitalization, Other)
  Sender: FDA-Public Use
  Company Number: PHHY2018AR133091

PATIENT
  Age: 37 Year
  Sex: Male

DRUGS (1)
  1. GILENYA [Suspect]
     Active Substance: FINGOLIMOD HYDROCHLORIDE
     Indication: MULTIPLE SCLEROSIS
     Dosage: 0.5 MG, QD
     Route: 065
     Dates: end: 20180820

REACTIONS (4)
  - Pain [Unknown]
  - Acute lymphocytic leukaemia [Recovering/Resolving]
  - Splenic infarction [Recovering/Resolving]
  - Spleen scan abnormal [Unknown]

NARRATIVE: CASE EVENT DATE: 20180820
